FAERS Safety Report 6337318-1 (Version None)
Quarter: 2009Q3

REPORT INFORMATION
  Report Type: 
  Country: None (occurrence: None)
  Receive Date: 20090828
  Receipt Date: 20090828
  Transmission Date: 20100115
  Serious: Yes (Hospitalization, Other)
  Sender: FDA-Public Use
  Company Number: None

PATIENT
  Age: 85 Year
  Sex: Female
  Weight: 54.4316 kg

DRUGS (2)
  1. BISACODYL HALFLITELY [Suspect]
     Indication: BOWEL PREPARATION
     Dosage: AS PRESCRIBED
     Dates: start: 20090609, end: 20090610
  2. BISACODYL HALFLITELY [Suspect]
     Indication: COLONOSCOPY
     Dosage: AS PRESCRIBED
     Dates: start: 20090609, end: 20090610

REACTIONS (3)
  - CONSTIPATION [None]
  - DIARRHOEA [None]
  - GASTROINTESTINAL DISORDER [None]
